FAERS Safety Report 8109234-6 (Version None)
Quarter: 2012Q1

REPORT INFORMATION
  Report Type: 
  Country: None (occurrence: None)
  Receive Date: 20120202
  Receipt Date: 20120109
  Transmission Date: 20120608
  Serious: No
  Sender: FDA-Public Use
  Company Number: US-AMGEN-USASP2012001503

PATIENT
  Age: 50 Year
  Sex: Female

DRUGS (1)
  1. ENBREL [Suspect]
     Indication: PSORIASIS
     Dosage: 50 MG, QWK
     Dates: start: 20050202, end: 20111223

REACTIONS (6)
  - PAIN [None]
  - DECREASED APPETITE [None]
  - WEIGHT DECREASED [None]
  - FATIGUE [None]
  - ABDOMINAL DISCOMFORT [None]
  - DIARRHOEA [None]
